FAERS Safety Report 12216588 (Version 1)
Quarter: 2016Q1

REPORT INFORMATION
  Report Type: Spontaneous
  Country: US (occurrence: None)
  Receive Date: 20160328
  Receipt Date: 20160328
  Transmission Date: 20160526
  Serious: Yes (Disabling)
  Sender: FDA-Public Use
  Company Number: None

PATIENT
  Age: 66 Year
  Sex: Female
  Weight: 86.18 kg

DRUGS (11)
  1. TERBINAFINE HCL [Suspect]
     Active Substance: TERBINAFINE HYDROCHLORIDE
     Indication: LOCALISED INFECTION
     Dosage: 30 TABLET (S) IN THE MORNING TAKEN BY MOUTH
     Route: 048
     Dates: start: 20160203, end: 20160314
  2. TERBINAFINE HCL [Suspect]
     Active Substance: TERBINAFINE HYDROCHLORIDE
     Indication: FUNGAL INFECTION
     Dosage: 30 TABLET (S) IN THE MORNING TAKEN BY MOUTH
     Route: 048
     Dates: start: 20160203, end: 20160314
  3. LEVOTHYROXINE. [Concomitant]
     Active Substance: LEVOTHYROXINE
  4. EZEDOC [Concomitant]
  5. MULTIPLE VITAMIN [Concomitant]
     Active Substance: VITAMINS
  6. B-COMPLEX WITH FOLIC ACID PLUS VITAMIN C [Concomitant]
  7. VITAMIN D3 [Concomitant]
     Active Substance: CHOLECALCIFEROL
  8. COENZYME Q10 [Concomitant]
     Active Substance: UBIDECARENONE
  9. OMEGA-3 ACIDS [Concomitant]
     Active Substance: OMEGA-3 FATTY ACIDS
  10. ROSUVASTATIN [Concomitant]
     Active Substance: ROSUVASTATIN
  11. CALCIUM, MAGNESIUM + ZINC (3 COMBINED) [Concomitant]

REACTIONS (7)
  - Dysgeusia [None]
  - Liver function test increased [None]
  - Abdominal discomfort [None]
  - Diarrhoea [None]
  - Eructation [None]
  - Ageusia [None]
  - Nausea [None]

NARRATIVE: CASE EVENT DATE: 20160303
